FAERS Safety Report 4668817-6 (Version None)
Quarter: 2005Q2

REPORT INFORMATION
  Report Type: 
  Country: None (occurrence: None)
  Receive Date: 20050523
  Receipt Date: 20050223
  Transmission Date: 20051028
  Serious: Yes (Other)
  Sender: FDA-Public Use
  Company Number: PHNU2005DE01099

PATIENT
  Sex: Female

DRUGS (5)
  1. ZOMETA [Suspect]
     Indication: METASTASES TO BONE
     Dosage: 4 MG, QMO
     Route: 042
     Dates: start: 20021001, end: 20050201
  2. CYCLOPHOSPHAMIDE + 5-FU + METHOTREXATE [Suspect]
     Dosage: 6 CYCLES
     Route: 065
     Dates: start: 19960701, end: 19961101
  3. HERCEPTIN [Suspect]
     Dosage: 450 MG, TIW
     Dates: start: 20000201
  4. RALOXIFENE HCL [Concomitant]
  5. RADIOTHERAPY [Suspect]
     Indication: RADIOTHERAPY TO BONE
     Route: 061
     Dates: start: 19960801, end: 19961001

REACTIONS (1)
  - OSTEONECROSIS [None]
